FAERS Safety Report 10357448 (Version 1)
Quarter: 2014Q3

REPORT INFORMATION
  Report Type: Spontaneous
  Country: FR (occurrence: FR)
  Receive Date: 20140801
  Receipt Date: 20140801
  Transmission Date: 20150326
  Serious: Yes (Hospitalization)
  Sender: FDA-Public Use
  Company Number: FR-ABBVIE-14P-056-1267067-00

PATIENT
  Age: 64 Year
  Sex: Male

DRUGS (3)
  1. LIPANTHYL [Suspect]
     Active Substance: FENOFIBRATE
     Indication: HYPERLIPIDAEMIA
     Route: 048
     Dates: end: 20140620
  2. CIBACENE [Suspect]
     Active Substance: BENAZEPRIL HYDROCHLORIDE
     Indication: HYPERTENSION
     Route: 048
  3. ZYLORIC [Suspect]
     Active Substance: ALLOPURINOL
     Indication: HYPERURICAEMIA
     Route: 048

REACTIONS (1)
  - Cerebral venous thrombosis [Recovered/Resolved]

NARRATIVE: CASE EVENT DATE: 20140610
